FAERS Safety Report 4815200-6 (Version None)
Quarter: 2005Q4

REPORT INFORMATION
  Report Type: 
  Country: None (occurrence: None)
  Receive Date: 20051028
  Receipt Date: 20050719
  Transmission Date: 20060501
  Serious: Yes (Hospitalization)
  Sender: FDA-Public Use
  Company Number: US-MERCK-0507USA02754

PATIENT
  Age: 62 Year
  Sex: Female
  Weight: 68 kg

DRUGS (20)
  1. VIOXX [Suspect]
     Indication: ARTHRITIS
     Route: 048
     Dates: start: 20021001, end: 20030215
  2. VIOXX [Suspect]
     Route: 048
     Dates: start: 20010311, end: 20010601
  3. ACETAMINOPHEN AND CODEINE [Concomitant]
     Route: 065
     Dates: start: 19991109
  4. LIORESAL [Concomitant]
     Indication: MUSCLE RELAXANT THERAPY
     Route: 065
     Dates: start: 20000912, end: 20010906
  5. GASTROINTESTINAL PREPARATIONS (UNSPECIFIED) [Concomitant]
     Indication: DIARRHOEA
     Route: 065
     Dates: start: 20020604
  6. FAMOTIDINE [Concomitant]
     Indication: GASTROOESOPHAGEAL REFLUX DISEASE
     Route: 065
     Dates: start: 20020124
  7. GLUCOPHAGE [Concomitant]
     Indication: DIABETES MELLITUS
     Route: 065
     Dates: start: 19980820, end: 20020124
  8. GLYBURIDE [Concomitant]
     Indication: DIABETES MELLITUS
     Route: 065
     Dates: start: 19990621, end: 20020124
  9. GUAIFENESIN [Concomitant]
     Route: 065
  10. ACETAMINOPHEN AND HYDROCODONE BITARTRATE [Concomitant]
     Indication: SCIATICA
     Route: 065
     Dates: start: 19980408, end: 20040417
  11. HYDROCORTISONE [Concomitant]
     Indication: SKIN IRRITATION
     Route: 065
     Dates: start: 20011022
  12. NEURONTIN [Concomitant]
     Indication: NERVE INJURY
     Route: 065
     Dates: start: 19991106, end: 20041208
  13. ACETAMINOPHEN AND PROPOXYPHENE NAPSYLATE [Concomitant]
     Indication: PAIN
     Route: 065
     Dates: start: 20000403, end: 20050101
  14. RANITIDINE [Concomitant]
     Indication: DYSPEPSIA
     Route: 065
     Dates: start: 20020401, end: 20020818
  15. SULFAMETHOXAZOLE [Concomitant]
     Indication: INFECTION
     Route: 065
     Dates: start: 20010111
  16. TEMAZEPAM [Concomitant]
     Indication: INSOMNIA
     Route: 065
     Dates: start: 20010608, end: 20030612
  17. TETRACYCLINE [Concomitant]
     Indication: INFECTION
     Route: 065
     Dates: start: 20020507, end: 20020818
  18. ZOCOR [Concomitant]
     Indication: BLOOD CHOLESTEROL INCREASED
     Route: 065
     Dates: start: 20021112, end: 20040930
  19. ACTOS [Concomitant]
     Indication: DIABETES MELLITUS
     Route: 065
     Dates: start: 20030121, end: 20041230
  20. PAXIL [Concomitant]
     Indication: DEPRESSION
     Route: 065
     Dates: start: 20030211

REACTIONS (3)
  - BREAST CANCER [None]
  - CHEST PAIN [None]
  - MYOCARDIAL INFARCTION [None]
